FAERS Safety Report 7220122-X (Version None)
Quarter: 2011Q1

REPORT INFORMATION
  Report Type: 
  Country: None (occurrence: None)
  Receive Date: 20110111
  Receipt Date: 20101230
  Transmission Date: 20110831
  Serious: Yes (Other)
  Sender: FDA-Public Use
  Company Number: PHHY2010US89856

PATIENT
  Age: 28 Year
  Sex: Female

DRUGS (3)
  1. PREDNISONE [Suspect]
  2. TACROLIMUS [Suspect]
  3. MYCOPHENOLATE MOFETIL [Suspect]
     Dosage: 1500 MG, BID

REACTIONS (9)
  - GASTROINTESTINAL EROSION [None]
  - COLITIS [None]
  - NAUSEA [None]
  - ABDOMINAL PAIN [None]
  - LEUKOPENIA [None]
  - TRANSPLANT REJECTION [None]
  - METABOLIC ACIDOSIS [None]
  - DIARRHOEA [None]
  - VOMITING [None]
